FAERS Safety Report 5578616-9 (Version None)
Quarter: 2007Q4

REPORT INFORMATION
  Report Type: 
  Country: None (occurrence: None)
  Receive Date: 20071228
  Receipt Date: 20071228
  Transmission Date: 20080405
  Serious: No
  Sender: FDA-Public Use
  Company Number: None

PATIENT
  Age: 70 Year
  Sex: Male

DRUGS (1)
  1. DIPYRIDAMOLE [Suspect]
     Dates: start: 20071218

REACTIONS (2)
  - BRADYCARDIA [None]
  - HYPOTENSION [None]
